FAERS Safety Report 18696355 (Version 1)
Quarter: 2021Q1

REPORT INFORMATION
  Report Type: Spontaneous
  Country: US (occurrence: US)
  Receive Date: 20210104
  Receipt Date: 20210104
  Transmission Date: 20210419
  Serious: Yes (Death, Other)
  Sender: FDA-Public Use
  Company Number: US-PURDUE-USA-2020-0179212

PATIENT
  Age: 38 Year
  Sex: Male

DRUGS (2)
  1. OXYCONTIN [Suspect]
     Active Substance: OXYCODONE HYDROCHLORIDE
     Indication: PRODUCT USED FOR UNKNOWN INDICATION
     Dosage: UNK
     Route: 048
     Dates: start: 200308
  2. METHADONE [Suspect]
     Active Substance: METHADONE HYDROCHLORIDE
     Indication: REHABILITATION THERAPY
     Dosage: UNK
     Route: 048
     Dates: start: 2011

REACTIONS (3)
  - Drug dependence [Unknown]
  - Death [Fatal]
  - Withdrawal syndrome [Unknown]

NARRATIVE: CASE EVENT DATE: 20170713
